FAERS Safety Report 8951355 (Version 1)
Quarter: 2012Q4

REPORT INFORMATION
  Report Type: 
  Country: GB (occurrence: GB)
  Receive Date: 20121207
  Receipt Date: 20121207
  Transmission Date: 20130627
  Serious: Yes (Other)
  Sender: FDA-Public Use
  Company Number: GB-B.I. PHARMACEUTICALS,INC./RIDGEFIELD-2012-UK-01867UK

PATIENT
  Age: 85 Year
  Sex: Female
  Weight: 92 kg

DRUGS (3)
  1. SPIRIVA [Suspect]
     Indication: CHRONIC OBSTRUCTIVE PULMONARY DISEASE
     Route: 055
     Dates: start: 20121120, end: 20121120
  2. ATROVENT [Concomitant]
  3. CLENIL MODULITE [Concomitant]

REACTIONS (4)
  - Dyspnoea [Not Recovered/Not Resolved]
  - Hyperventilation [Unknown]
  - Paraesthesia [Unknown]
  - Respiratory rate decreased [Unknown]
